FAERS Safety Report 6619330-8 (Version None)
Quarter: 2010Q1

REPORT INFORMATION
  Report Type: 
  Country: None (occurrence: None)
  Receive Date: 20100308
  Receipt Date: 20100225
  Transmission Date: 20100710
  Serious: Yes (Other)
  Sender: FDA-Public Use
  Company Number: MX-BRISTOL-MYERS SQUIBB COMPANY-14993547

PATIENT
  Sex: Female

DRUGS (1)
  1. ONGLYZA [Suspect]

REACTIONS (2)
  - ACCIDENTAL OVERDOSE [None]
  - RENAL FAILURE ACUTE [None]
